FAERS Safety Report 24006652 (Version 1)
Quarter: 2024Q2

REPORT INFORMATION
  Report Type: Spontaneous
  Country: US (occurrence: US)
  Receive Date: 20240624
  Receipt Date: 20240624
  Transmission Date: 20240716
  Serious: Yes (Other)
  Sender: FDA-Public Use
  Company Number: US-BRISTOL-MYERS SQUIBB COMPANY-2024-095503

PATIENT
  Age: 65 Year
  Sex: Female
  Weight: 82.5 kg

DRUGS (16)
  1. REVLIMID [Suspect]
     Active Substance: LENALIDOMIDE
     Indication: Plasma cell myeloma
     Dates: start: 202112
  2. REVLIMID [Suspect]
     Active Substance: LENALIDOMIDE
     Dates: start: 202204
  3. REVLIMID [Suspect]
     Active Substance: LENALIDOMIDE
     Dosage: FREQUENCY: 28
     Dates: start: 202204
  4. REVLIMID [Suspect]
     Active Substance: LENALIDOMIDE
     Dates: start: 20240428
  5. VELCADE [Suspect]
     Active Substance: BORTEZOMIB
     Indication: Plasma cell myeloma
  6. PREGABALIN [Concomitant]
     Active Substance: PREGABALIN
     Route: 048
  7. ACYCLOVIR [Concomitant]
     Active Substance: ACYCLOVIR
     Indication: Infection prophylaxis
     Route: 048
  8. ALENDRONATE [Concomitant]
     Active Substance: ALENDRONATE SODIUM
     Route: 048
  9. ATORVASTATIN [Concomitant]
     Active Substance: ATORVASTATIN
     Dosage: AT BED TIME
     Route: 048
  10. LOSARTAN [Concomitant]
     Active Substance: LOSARTAN
     Route: 048
  11. SOTALOL [Concomitant]
     Active Substance: SOTALOL
     Route: 048
  12. AMLODIPINE [Concomitant]
     Active Substance: AMLODIPINE BESYLATE
     Route: 048
  13. APIXABAN [Concomitant]
     Active Substance: APIXABAN
     Route: 048
  14. ONDANSETRON [Concomitant]
     Active Substance: ONDANSETRON
     Route: 048
  15. PROMETHAZINE DM [Concomitant]
     Active Substance: DEXTROMETHORPHAN HYDROBROMIDE\PROMETHAZINE HYDROCHLORIDE
     Indication: Cough
     Dosage: 6.25-15MG/5ML, 4 TIMES DAILY AS NEEDED FOR COUGH
     Route: 048
  16. DEXAMETHASONE [Concomitant]
     Active Substance: DEXAMETHASONE
     Dates: start: 202112

REACTIONS (6)
  - Upper respiratory tract infection [Not Recovered/Not Resolved]
  - Neuropathy peripheral [Unknown]
  - Mean cell volume abnormal [Unknown]
  - Platelet count abnormal [Unknown]
  - Monocyte count abnormal [Unknown]
  - Blood glucose abnormal [Unknown]
